FAERS Safety Report 26080213 (Version 1)
Quarter: 2025Q4

REPORT INFORMATION
  Report Type: Spontaneous
  Country: GB (occurrence: GB)
  Receive Date: 20251124
  Receipt Date: 20251124
  Transmission Date: 20260118
  Serious: Yes (Hospitalization, Other)
  Sender: TEVA
  Company Number: None

PATIENT
  Age: 70 Year
  Sex: Female
  Weight: 47 kg

DRUGS (4)
  1. GABAPENTIN [Suspect]
     Active Substance: GABAPENTIN
     Indication: Multiple sclerosis
     Dosage: TEVA UK, 100MG 3X PER DAY, INCREASING
     Route: 065
     Dates: start: 20231001, end: 20240301
  2. GABAPENTIN [Suspect]
     Active Substance: GABAPENTIN
     Indication: Multiple sclerosis
     Dosage: DAILY DOSE: 750 MG?COLONIS, 100MG 3X PER DAY INCREASING TO 250MG 3X PER DAY
     Route: 065
     Dates: start: 20231001, end: 20231001
  3. GABAPENTIN [Suspect]
     Active Substance: GABAPENTIN
     Indication: Multiple sclerosis
     Dosage: DAILY DOSE: 300 MG?100MG 3X PER DAY INCREASING TO 250MG 3X PER DAY
     Route: 065
     Dates: start: 20231001, end: 20231001
  4. GABAPENTIN [Concomitant]
     Active Substance: GABAPENTIN
     Indication: Multiple sclerosis
     Route: 065
     Dates: start: 20231001, end: 20240301

REACTIONS (4)
  - Visual impairment [Unknown]
  - Photophobia [Unknown]
  - Eye pain [Recovered/Resolved with Sequelae]
  - Uveitis [Unknown]
